FAERS Safety Report 13757536 (Version 5)
Quarter: 2023Q2

REPORT INFORMATION
  Report Type: Report from Study
  Country: BE (occurrence: BE)
  Receive Date: 20170717
  Receipt Date: 20230401
  Transmission Date: 20230721
  Serious: Yes (Hospitalization, Other)
  Sender: FDA-Public Use
  Company Number: BE-AUROBINDO-AUR-APL-2017-37320

PATIENT
  Age: 63 Year
  Sex: Female

DRUGS (6)
  1. IBUPROFEN [Suspect]
     Active Substance: IBUPROFEN
     Indication: Antiinflammatory therapy
     Dosage: 400 MILLIGRAM, TWO TIMES A DAY
     Route: 065
  2. IBUPROFEN [Suspect]
     Active Substance: IBUPROFEN
     Indication: Pericarditis
  3. METFORMIN [Suspect]
     Active Substance: METFORMIN HYDROCHLORIDE
     Indication: Type 2 diabetes mellitus
     Dosage: 850 MG, TWO TIMES A DAY
     Route: 065
  4. PERINDOPRIL [Suspect]
     Active Substance: PERINDOPRIL
     Indication: Hypertension
     Dosage: 10 MILLIGRAM, ONCE A DAY
     Route: 065
  5. COLCHICINE [Concomitant]
     Active Substance: COLCHICINE
     Indication: Antiinflammatory therapy
     Dosage: 1 MILLIGRAM, ONCE A DAY
     Route: 065
  6. COLCHICINE [Concomitant]
     Active Substance: COLCHICINE
     Indication: Pericarditis

REACTIONS (11)
  - Metabolic acidosis [Recovering/Resolving]
  - Hyperlactacidaemia [Recovering/Resolving]
  - Acute kidney injury [Recovering/Resolving]
  - Vomiting [Recovered/Resolved with Sequelae]
  - Dehydration [Recovered/Resolved]
  - Gastrointestinal disorder [Recovered/Resolved with Sequelae]
  - Renal failure [Recovering/Resolving]
  - Proteinuria [Unknown]
  - Cholelithiasis [Recovering/Resolving]
  - Blood lactic acid increased [Recovered/Resolved]
  - Product use in unapproved indication [Unknown]
